FAERS Safety Report 6343146-3 (Version None)
Quarter: 2009Q3

REPORT INFORMATION
  Report Type: 
  Country: None (occurrence: None)
  Receive Date: 20090821
  Receipt Date: 20090514
  Transmission Date: 20100115
  Serious: No
  Sender: FDA-Public Use
  Company Number: 8046415

PATIENT
  Age: 22 Year
  Sex: Female

DRUGS (1)
  1. CIMZIA [Suspect]
     Dosage: SC
     Route: 058

REACTIONS (2)
  - BODY TEMPERATURE INCREASED [None]
  - HEART RATE INCREASED [None]
